FAERS Safety Report 4539365-9 (Version None)
Quarter: 2004Q4

REPORT INFORMATION
  Report Type: 
  Country: None (occurrence: None)
  Receive Date: 20041223
  Receipt Date: 20041219
  Transmission Date: 20050328
  Serious: Yes (Death)
  Sender: FDA-Public Use
  Company Number: US-JNJFOC-20041103665

PATIENT
  Age: 71 Year
  Sex: Male

DRUGS (15)
  1. TYLENOL [Suspect]
     Indication: PAIN
     Dosage: 650 MG Q4H PRN
     Dates: start: 20040401
  2. AVELOX [Suspect]
     Indication: PNEUMONIA
     Dosage: SEE IMAGE
     Dates: start: 20040401, end: 20040401
  3. ALBUTEROL [Suspect]
     Indication: PNEUMONIA
     Dosage: 2.5 MG,, 1 IN 4 HOUR, INHALATION
     Route: 055
     Dates: start: 20040401, end: 20040401
  4. ATROVENT [Suspect]
     Indication: PNEUMONIA
     Dosage: Q6H
     Dates: start: 20040401, end: 20040401
  5. ROCEPHIN [Suspect]
     Indication: UNEVALUABLE EVENT
     Dosage: 1 G, 1 IN 1 DAY, INTRAVENOUS
     Route: 042
     Dates: start: 20040401, end: 20040401
  6. FLOMAX [Suspect]
     Indication: PROSTATIC DISORDER
     Dosage: 0.4 MG
     Dates: start: 20040331
  7. LISINOPRIL [Concomitant]
  8. HYDROCHLOROTHIAZIDE [Concomitant]
  9. COUMADIN [Concomitant]
  10. ATENOLOL [Concomitant]
  11. BCG VACCINE (BCG VACCINE) [Concomitant]
  12. ATROVENT [Concomitant]
  13. SEREVENT [Concomitant]
  14. AZMACORT [Concomitant]
  15. MULTIVITAMIN (MULTIVITAMINS) [Concomitant]

REACTIONS (16)
  - ACUTE PULMONARY OEDEMA [None]
  - ATRIAL FIBRILLATION [None]
  - CARDIAC FAILURE CONGESTIVE [None]
  - CARDIO-RESPIRATORY ARREST [None]
  - COMA [None]
  - CONFUSIONAL STATE [None]
  - CYANOSIS [None]
  - ELECTROMECHANICAL DISSOCIATION [None]
  - FAECAL INCONTINENCE [None]
  - GENERAL PHYSICAL HEALTH DETERIORATION [None]
  - HAEMOPTYSIS [None]
  - MYOCARDIAL INFARCTION [None]
  - NO THERAPEUTIC RESPONSE [None]
  - PULMONARY EMBOLISM [None]
  - RENAL FAILURE [None]
  - VENTRICULAR HYPERTROPHY [None]
